FAERS Safety Report 10965185 (Version 1)
Quarter: 2015Q1

REPORT INFORMATION
  Report Type: Spontaneous
  Country: US (occurrence: None)
  Receive Date: 20150327
  Receipt Date: 20150327
  Transmission Date: 20150721
  Serious: Yes (Other)
  Sender: FDA-Public Use
  Company Number: None

PATIENT
  Age: 65 Year
  Sex: Female
  Weight: 66.68 kg

DRUGS (12)
  1. GABAPENTIN 300 MG [Suspect]
     Active Substance: GABAPENTIN
     Indication: PROCEDURAL PAIN
     Dosage: 1 PILL THREE TIMES DAILY TAKEN BY MOUTH
     Route: 048
     Dates: start: 20150311, end: 20150326
  2. TOPAMAX [Concomitant]
     Active Substance: TOPIRAMATE
  3. SYNTHROID [Concomitant]
     Active Substance: LEVOTHYROXINE SODIUM
  4. DEXILANT [Concomitant]
     Active Substance: DEXLANSOPRAZOLE
  5. SPIRIVA [Concomitant]
     Active Substance: TIOTROPIUM BROMIDE MONOHYDRATE
  6. HYDROCHLOROTHIAZIDE. [Concomitant]
     Active Substance: HYDROCHLOROTHIAZIDE
  7. ALBUTEROL INHALER [Concomitant]
     Active Substance: ALBUTEROL
  8. XANAX [Concomitant]
     Active Substance: ALPRAZOLAM
  9. PERCOCET [Concomitant]
     Active Substance: ACETAMINOPHEN\OXYCODONE HYDROCHLORIDE
  10. TZANDINE [Concomitant]
  11. IRON? [Concomitant]
  12. VITAMIN C [Concomitant]
     Active Substance: ASCORBIC ACID

REACTIONS (5)
  - Disorientation [None]
  - Tremor [None]
  - Anger [None]
  - Disturbance in attention [None]
  - Nervousness [None]

NARRATIVE: CASE EVENT DATE: 20150311
